FAERS Safety Report 23890590 (Version 2)
Quarter: 2024Q2

REPORT INFORMATION
  Report Type: Spontaneous
  Country: US (occurrence: US)
  Receive Date: 20240523
  Receipt Date: 20240523
  Transmission Date: 20240716
  Serious: No
  Sender: FDA-Public Use
  Company Number: US-ABBVIE-5767423

PATIENT
  Age: 78 Year
  Sex: Female
  Weight: 126.09 kg

DRUGS (2)
  1. CREON [Suspect]
     Active Substance: PANCRELIPASE AMYLASE\PANCRELIPASE LIPASE\PANCRELIPASE PROTEASE
     Indication: Pancreatic failure
     Dosage: FORM STRENGTH: 36000 UNIT/FREQUENCY TEXT: 2CAPSULES WITH MEALS,1CAPSULE WITH SNACK
     Route: 048
     Dates: start: 20240517
  2. PREVACID [Concomitant]
     Active Substance: LANSOPRAZOLE
     Indication: Gastrooesophageal reflux disease
     Dosage: 15 MILLIGRAMS

REACTIONS (1)
  - Eructation [Recovering/Resolving]

NARRATIVE: CASE EVENT DATE: 20240517
